FAERS Safety Report 19961180 (Version 1)
Quarter: 2021Q4

REPORT INFORMATION
  Report Type: Report from Study
  Country: US (occurrence: US)
  Receive Date: 20211016
  Receipt Date: 20211016
  Transmission Date: 20220304
  Serious: Yes (Hospitalization, Other)
  Sender: FDA-Public Use
  Company Number: US-SANOFI-00447214

PATIENT
  Age: 71 Year
  Sex: Female

DRUGS (10)
  1. DUPILUMAB [Suspect]
     Active Substance: DUPILUMAB
     Indication: Dermatitis atopic
     Dosage: 600 MG, 1X
     Route: 058
     Dates: start: 20191101, end: 20191101
  2. DUPILUMAB [Suspect]
     Active Substance: DUPILUMAB
     Indication: Dermatitis atopic
     Dosage: 600 MG, 1X
     Route: 058
     Dates: start: 20191101, end: 20191101
  3. DUPILUMAB [Suspect]
     Active Substance: DUPILUMAB
     Indication: Post herpetic neuralgia
     Dosage: 300 MG, QOW
     Route: 058
     Dates: start: 20191121, end: 2021
  4. DUPILUMAB [Suspect]
     Active Substance: DUPILUMAB
     Indication: Post herpetic neuralgia
     Dosage: 300 MG, QOW
     Route: 058
     Dates: start: 20191121, end: 2021
  5. DUPILUMAB [Suspect]
     Active Substance: DUPILUMAB
     Indication: Dermatitis atopic
     Dosage: 300 MG, QOW
     Route: 058
     Dates: start: 20210101
  6. DUPILUMAB [Suspect]
     Active Substance: DUPILUMAB
     Indication: Dermatitis atopic
     Dosage: 300 MG, QOW
     Route: 058
     Dates: start: 20210101
  7. DUPILUMAB [Suspect]
     Active Substance: DUPILUMAB
     Indication: Post herpetic neuralgia
  8. DUPILUMAB [Suspect]
     Active Substance: DUPILUMAB
     Indication: Post herpetic neuralgia
  9. EFFEXOR [Concomitant]
     Active Substance: VENLAFAXINE HYDROCHLORIDE
  10. LYRICA [Concomitant]
     Active Substance: PREGABALIN

REACTIONS (15)
  - Cataract [Not Recovered/Not Resolved]
  - Back pain [Recovered/Resolved]
  - Dislocation of vertebra [Unknown]
  - Scoliosis [Unknown]
  - Helminthic infection [Unknown]
  - Skin lesion [Unknown]
  - Musculoskeletal stiffness [Unknown]
  - Dysphonia [Not Recovered/Not Resolved]
  - Condition aggravated [Not Recovered/Not Resolved]
  - Eczema [Unknown]
  - Bed rest [Recovered/Resolved]
  - Therapeutic product effect variable [Unknown]
  - Product use in unapproved indication [Unknown]
  - Product dose omission issue [Unknown]
  - Unevaluable event [Unknown]

NARRATIVE: CASE EVENT DATE: 20190101
